FAERS Safety Report 8867101 (Version 1)
Quarter: 2012Q4

REPORT INFORMATION
  Report Type: 
  Country: US (occurrence: US)
  Receive Date: 20121025
  Receipt Date: 20121025
  Transmission Date: 20130627
  Serious: No
  Sender: FDA-Public Use
  Company Number: US-AMGEN-USASP2012014844

PATIENT
  Sex: Male

DRUGS (9)
  1. ENBREL [Suspect]
     Indication: PRODUCT USED FOR UNKNOWN INDICATION
     Dosage: 50 mg, qwk
     Route: 058
  2. METHOTREXATE [Concomitant]
     Dosage: 2.5 mg, UNK
  3. ASA [Concomitant]
     Dosage: 81 UNK, UNK
  4. SIMVASTATIN [Concomitant]
     Dosage: 10 mg, UNK
  5. FOLIC ACID [Concomitant]
  6. PROVENTIL                          /00139501/ [Concomitant]
     Dosage: 90 mug, UNK
  7. FAMOTIDINE [Concomitant]
     Dosage: 10 mg, UNK
  8. NITROGLYCERIN [Concomitant]
     Dosage: 0.3 mg, UNK
  9. PREDNISONE [Concomitant]
     Dosage: 1 mg, UNK

REACTIONS (3)
  - Injection site erythema [Unknown]
  - Injection site pain [Unknown]
  - Injection site swelling [Unknown]
